FAERS Safety Report 7469096-7 (Version None)
Quarter: 2011Q2

REPORT INFORMATION
  Report Type: 
  Country: None (occurrence: None)
  Receive Date: 20110429
  Receipt Date: 20110414
  Transmission Date: 20111010
  Serious: Yes (Hospitalization)
  Sender: FDA-Public Use
  Company Number: IDA-00534

PATIENT
  Age: 28 Year
  Sex: Male

DRUGS (10)
  1. PROPRANOLOL [Suspect]
     Dosage: 2.5 DF DAILY
     Dates: end: 20110328
  2. TERCIAN (CYAMEMAZINE) [Suspect]
     Dosage: 75 MG DAILY
     Dates: end: 20110328
  3. RISPERDAL [Suspect]
     Dosage: DOSE TEXT: DAILY
     Dates: end: 20110328
  4. OXAZEPAM [Suspect]
     Dosage: 50 MG Q8-12H
     Dates: end: 20110328
  5. FENOFIBRATE [Suspect]
     Dosage: 145 MG DAILY
     Dates: start: 20110201, end: 20110328
  6. TEGRETOL [Suspect]
     Dosage: 2.5 DF DAILY
     Dates: start: 20110201, end: 20110328
  7. HAVLANE (LOPRAZOLAM MESILATE) [Suspect]
     Dosage: 1 DF DAILY
     Dates: end: 20110328
  8. LORAZEPAM [Suspect]
     Dosage: .5 DF DAILY
     Dates: start: 20110201, end: 20110328
  9. EFFEXOR [Suspect]
     Dosage: 75 MG DAILY
     Dates: end: 20110328
  10. ZOLPIDEM TARTRATE [Suspect]
     Dosage: 1 DF PRN
     Dates: end: 20110328

REACTIONS (1)
  - CYTOLYTIC HEPATITIS [None]
